FAERS Safety Report 20541966 (Version 5)
Quarter: 2022Q3

REPORT INFORMATION
  Report Type: Report from Study
  Country: US (occurrence: US)
  Receive Date: 20220302
  Receipt Date: 20220625
  Transmission Date: 20221027
  Serious: No
  Sender: FDA-Public Use
  Company Number: US-NOVARTISTESTPH-NVSC2022US049220

PATIENT
  Sex: Male

DRUGS (1)
  1. ENTRESTO [Suspect]
     Active Substance: SACUBITRIL\VALSARTAN
     Indication: Cardiac failure
     Dosage: UNK UNK, QD
     Route: 048

REACTIONS (7)
  - Weight decreased [Unknown]
  - Confusional state [Unknown]
  - Gastroenteritis viral [Unknown]
  - Fatigue [Unknown]
  - Rash pruritic [Unknown]
  - Dizziness [Unknown]
  - Inappropriate schedule of product administration [Unknown]
